FAERS Safety Report 9931851 (Version 1)
Quarter: 2014Q1

REPORT INFORMATION
  Report Type: Spontaneous
  Country: US (occurrence: None)
  Receive Date: 20140227
  Receipt Date: 20140227
  Transmission Date: 20141002
  Serious: Yes (Hospitalization, Disabling, Other)
  Sender: FDA-Public Use
  Company Number: None

PATIENT
  Age: 36 Year
  Sex: Female
  Weight: 58.97 kg

DRUGS (1)
  1. METOPROLOL [Suspect]
     Indication: BLOOD PRESSURE
     Route: 048

REACTIONS (7)
  - Suicidal ideation [None]
  - Chest pain [None]
  - Anxiety [None]
  - Flatulence [None]
  - Mood altered [None]
  - Cognitive disorder [None]
  - Quality of life decreased [None]
